FAERS Safety Report 9668028 (Version 3)
Quarter: 2014Q1

REPORT INFORMATION
  Report Type: Spontaneous
  Country: US (occurrence: None)
  Receive Date: 20131101
  Receipt Date: 20140122
  Transmission Date: 20141002
  Serious: Yes (Other)
  Sender: FDA-Public Use
  Company Number: ADR-2013-01982

PATIENT
  Age: 51 Year
  Sex: Male

DRUGS (1)
  1. LIORESAL [Suspect]
     Indication: MUSCLE SPASTICITY

REACTIONS (7)
  - Device connection issue [None]
  - Fall [None]
  - Bowel movement irregularity [None]
  - Musculoskeletal disorder [None]
  - Dyskinesia [None]
  - Device alarm issue [None]
  - General physical health deterioration [None]
